FAERS Safety Report 11148175 (Version 1)
Quarter: 2015Q2

REPORT INFORMATION
  Report Type: Spontaneous
  Country: US (occurrence: US)
  Receive Date: 20150529
  Receipt Date: 20150529
  Transmission Date: 20150821
  Serious: No
  Sender: FDA-Public Use
  Company Number: US-009507513-1504USA020769

PATIENT
  Sex: Female

DRUGS (3)
  1. PRIMAXIN IV [Suspect]
     Active Substance: CILASTATIN SODIUM\IMIPENEM
     Indication: INFECTION
     Route: 042
  2. ZOFRAN [Concomitant]
     Active Substance: ONDANSETRON HYDROCHLORIDE
     Dosage: 8 MG, UNK
     Route: 042
  3. PRIMAXIN IV [Suspect]
     Active Substance: CILASTATIN SODIUM\IMIPENEM
     Indication: SEPSIS

REACTIONS (2)
  - Vomiting [Unknown]
  - Nausea [Unknown]
